FAERS Safety Report 6217287-5 (Version None)
Quarter: 2009Q2

REPORT INFORMATION
  Report Type: 
  Country: None (occurrence: None)
  Receive Date: 20090604
  Receipt Date: 20090604
  Transmission Date: 20091009
  Serious: Yes (Other)
  Sender: FDA-Public Use
  Company Number: None

PATIENT
  Sex: Male
  Weight: 60.9 kg

DRUGS (1)
  1. RITUXIMAB [Suspect]
     Dates: start: 20090513, end: 20090513

REACTIONS (3)
  - BLOOD PRESSURE DECREASED [None]
  - CHILLS [None]
  - INFUSION RELATED REACTION [None]
